FAERS Safety Report 24283246 (Version 1)
Quarter: 2024Q3

REPORT INFORMATION
  Report Type: Spontaneous
  Country: US (occurrence: US)
  Receive Date: 20240904
  Receipt Date: 20240904
  Transmission Date: 20241017
  Serious: Yes (Disabling)
  Sender: ELI LILLY AND CO
  Company Number: US-ELI_LILLY_AND_COMPANY-US202408015453

PATIENT
  Age: 72 Year
  Sex: Male

DRUGS (2)
  1. FORTEO [Suspect]
     Active Substance: TERIPARATIDE
     Indication: Osteoporosis
     Dosage: UNK UNK, UNKNOWN
     Route: 065
     Dates: start: 2014
  2. FORTEO [Suspect]
     Active Substance: TERIPARATIDE
     Indication: Knee arthroplasty

REACTIONS (3)
  - Tooth loss [Unknown]
  - Pulpless tooth [Unknown]
  - Toothache [Unknown]

NARRATIVE: CASE EVENT DATE: 20140101
